FAERS Safety Report 9160732 (Version 2)
Quarter: 2013Q1

REPORT INFORMATION
  Report Type: Spontaneous
  Country: US (occurrence: US)
  Receive Date: 20130313
  Receipt Date: 20130320
  Transmission Date: 20140127
  Serious: Yes (Hospitalization, Disabling, Other)
  Sender: FDA-Public Use
  Company Number: US-PFIZER INC-HQWYE364726JUL06

PATIENT
  Age: 59 Year
  Sex: Male

DRUGS (14)
  1. PROTONIX [Suspect]
     Indication: HICCUPS
     Dosage: UNKNOWN
     Route: 065
  2. PROMETHAZINE HCL [Suspect]
     Indication: HICCUPS
  3. ONDANSETRON HCL [Suspect]
     Indication: HICCUPS
  4. RANITIDINE [Suspect]
     Indication: HICCUPS
     Dosage: 150 MG, 2X/DAY
     Route: 048
  5. CHLORPROMAZINE [Suspect]
     Indication: HICCUPS
     Dosage: 25 MG, 4X/DAY
  6. TEGASEROD [Suspect]
     Indication: HICCUPS
     Dosage: 6 MG, 2X/DAY
     Route: 048
  7. GLYBURIDE [Concomitant]
     Dosage: UNK
     Route: 065
  8. LISINOPRIL [Concomitant]
     Dosage: UNK
     Route: 065
  9. METOPROLOL [Concomitant]
     Dosage: UNK
     Route: 065
  10. AMLODIPINE [Concomitant]
     Dosage: UNK
     Route: 065
  11. ASPIRIN [Concomitant]
     Dosage: UNK
     Route: 065
  12. GABAPENTIN [Concomitant]
     Dosage: UNK
     Route: 065
  13. INSULIN [Concomitant]
     Route: 065
  14. METOCLOPRAMIDE [Concomitant]
     Route: 042

REACTIONS (1)
  - Drug ineffective [Unknown]
